FAERS Safety Report 5537206-4 (Version None)
Quarter: 2007Q4

REPORT INFORMATION
  Report Type: 
  Country: None (occurrence: None)
  Receive Date: 20071207
  Receipt Date: 20071203
  Transmission Date: 20080405
  Serious: Yes (Other)
  Sender: FDA-Public Use
  Company Number: DE-JNJFOC-20071110963

PATIENT
  Sex: Female
  Weight: 68 kg

DRUGS (4)
  1. REMICADE [Suspect]
     Route: 042
  2. REMICADE [Suspect]
     Indication: UVEITIS
     Route: 042
  3. REMICADE [Suspect]
     Indication: ANKYLOSING SPONDYLITIS
     Route: 042
  4. CELEBREX [Concomitant]
     Indication: ANKYLOSING SPONDYLITIS

REACTIONS (5)
  - ABDOMINAL PAIN [None]
  - HYPOTENSION [None]
  - INFUSION RELATED REACTION [None]
  - RASH MACULAR [None]
  - TRANSAMINASES INCREASED [None]
